FAERS Safety Report 4656694-9 (Version None)
Quarter: 2005Q2

REPORT INFORMATION
  Report Type: 
  Country: None (occurrence: None)
  Receive Date: 20050506
  Receipt Date: 20050422
  Transmission Date: 20051028
  Serious: Yes (Life-Threatening, Hospitalization, Other)
  Sender: FDA-Public Use
  Company Number: 200503453

PATIENT
  Age: 30 Year
  Sex: Female

DRUGS (9)
  1. BOTULINUM TOXIN TYPE A [Suspect]
     Indication: BACK PAIN
  2. ROPIVACAINE [Suspect]
     Indication: BACK PAIN
  3. TRIAMCINOLONE [Suspect]
     Indication: BACK PAIN
  4. METHYLPREDNISOLONE [Suspect]
     Indication: BACK PAIN
  5. TRAMADOL [Concomitant]
  6. TILIDINE/NALOXONE [Concomitant]
  7. DICLOFENAC [Concomitant]
  8. DIPYRONE [Concomitant]
  9. ACETAMINOPHEN [Concomitant]

REACTIONS (17)
  - ABSCESS BACTERIAL [None]
  - ACNE [None]
  - BACK PAIN [None]
  - BLOOD CULTURE POSITIVE [None]
  - CONDITION AGGRAVATED [None]
  - DISTURBANCE IN ATTENTION [None]
  - DRUG ABUSER [None]
  - DRUG TOXICITY [None]
  - HAEMOGLOBIN DECREASED [None]
  - HEPATIC ENZYME INCREASED [None]
  - HIRSUTISM [None]
  - OEDEMA PERIPHERAL [None]
  - ORAL CANDIDIASIS [None]
  - PAIN IN EXTREMITY [None]
  - SOMATISATION DISORDER [None]
  - STAPHYLOCOCCAL INFECTION [None]
  - TACHYCARDIA [None]
